FAERS Safety Report 16002019 (Version 1)
Quarter: 2019Q1

REPORT INFORMATION
  Report Type: Spontaneous
  Country: US (occurrence: US)
  Receive Date: 20190225
  Receipt Date: 20190225
  Transmission Date: 20190418
  Serious: Yes (Other)
  Sender: FDA-Public Use
  Company Number: US-PFIZER INC-2019063154

PATIENT
  Sex: Male

DRUGS (3)
  1. EFFEXOR XR [Suspect]
     Active Substance: VENLAFAXINE HYDROCHLORIDE
     Dosage: UNK (TAKEN 37.5 TO 225MG)
  2. EFFEXOR XR [Suspect]
     Active Substance: VENLAFAXINE HYDROCHLORIDE
     Dosage: 75 MG, UNK (MORE TIMES PER DAY)
  3. EFFEXOR XR [Suspect]
     Active Substance: VENLAFAXINE HYDROCHLORIDE
     Dosage: 150 MG, 1X/DAY

REACTIONS (11)
  - Headache [Unknown]
  - Serotonin syndrome [Unknown]
  - Migraine [Unknown]
  - Hyperhidrosis [Unknown]
  - Heart rate increased [Unknown]
  - Chills [Unknown]
  - Drug ineffective [Unknown]
  - Visual impairment [Unknown]
  - Fatigue [Unknown]
  - Cystinosis [Unknown]
  - Feeling abnormal [Unknown]
